FAERS Safety Report 7639032-9 (Version None)
Quarter: 2011Q3

REPORT INFORMATION
  Report Type: 
  Country: None (occurrence: None)
  Receive Date: 20110727
  Receipt Date: 20110719
  Transmission Date: 20111222
  Serious: Yes (Hospitalization, Other)
  Sender: FDA-Public Use
  Company Number: US-PFIZER INC-2011151753

PATIENT
  Sex: Female

DRUGS (2)
  1. TRAZODONE HCL [Suspect]
     Indication: DEPRESSION
     Dosage: 300 MG, 1X/DAY
     Route: 048
     Dates: start: 20040101
  2. TRAZODONE HCL [Suspect]
     Dosage: 150 MG, UNK

REACTIONS (1)
  - GUILLAIN-BARRE SYNDROME [None]
